FAERS Safety Report 18265646 (Version 1)
Quarter: 2020Q3

REPORT INFORMATION
  Report Type: Spontaneous
  Country: US (occurrence: US)
  Receive Date: 20200915
  Receipt Date: 20200915
  Transmission Date: 20201103
  Serious: Yes (Death, Other)
  Sender: FDA-Public Use
  Company Number: US-SHILPA MEDICARE LIMITED-SML-US-2020-00252

PATIENT

DRUGS (4)
  1. CISPLATIN. [Suspect]
     Active Substance: CISPLATIN
     Indication: BONE CANCER METASTATIC
     Route: 065
  2. GEMCITABINE, UNKNOWN [Suspect]
     Active Substance: GEMCITABINE
     Indication: BONE CANCER METASTATIC
     Dosage: SYSTEMIC TREATMENT
     Route: 065
  3. DOCETAXEL, UNKNOWN [Suspect]
     Active Substance: DOCETAXEL
     Indication: BONE CANCER METASTATIC
     Dosage: SYSTEMIC TREATMENT
     Route: 065
  4. IRINOTECAN, UNKNOWN [Suspect]
     Active Substance: IRINOTECAN
     Indication: BONE CANCER METASTATIC
     Route: 065

REACTIONS (4)
  - Tinnitus [Unknown]
  - Weight decreased [Unknown]
  - Malignant neoplasm progression [Fatal]
  - Diarrhoea [Unknown]
